FAERS Safety Report 6815312-1 (Version None)
Quarter: 2010Q3

REPORT INFORMATION
  Report Type: 
  Country: None (occurrence: None)
  Receive Date: 20100702
  Receipt Date: 20100621
  Transmission Date: 20110219
  Serious: Yes (Hospitalization)
  Sender: FDA-Public Use
  Company Number: JP-BRISTOL-MYERS SQUIBB COMPANY-15159411

PATIENT
  Age: 36 Year
  Sex: Male
  Weight: 83 kg

DRUGS (4)
  1. BLEOMYCIN SULFATE [Suspect]
     Indication: LYMPHOMA
     Dosage: 1 DF - 9MG/M SUP(2) BY 30MIN INF;
  2. DOXORUBICIN HCL [Suspect]
     Indication: LYMPHOMA
     Dosage: 1 DF - 25MG/M SUP(2) BY 30MIN INF;
  3. VINBLASTINE SULFATE [Suspect]
     Indication: LYMPHOMA
     Dosage: 1 DF - 6MG/M SUP(2) BY 30MIN BOLUS INF;
  4. DACARBAZINE [Suspect]
     Indication: LYMPHOMA
     Dosage: 1 DF - 375MG/M SUP(2) BY 2HR INF; REINTRODUCED AND THE PATIENT RECEIVED 7 ROUNDS OF THERAPY

REACTIONS (2)
  - INTERLEUKIN LEVEL INCREASED [None]
  - TUMOUR LYSIS SYNDROME [None]
